FAERS Safety Report 6769087-5 (Version None)
Quarter: 2010Q2

REPORT INFORMATION
  Report Type: 
  Country: None (occurrence: None)
  Receive Date: 20100607
  Receipt Date: 20100525
  Transmission Date: 20101027
  Serious: Yes (Other)
  Sender: FDA-Public Use
  Company Number: 2010SP029956

PATIENT

DRUGS (1)
  1. NORCURON [Suspect]
     Indication: DRUG USE FOR UNKNOWN INDICATION
     Dosage: INTH
     Route: 037

REACTIONS (1)
  - PARALYSIS [None]
